FAERS Safety Report 19677050 (Version 3)
Quarter: 2025Q3

REPORT INFORMATION
  Report Type: Report from Study
  Country: ZA (occurrence: ZA)
  Receive Date: 20210809
  Receipt Date: 20250807
  Transmission Date: 20251021
  Serious: Yes (Hospitalization, Disabling, Other)
  Sender: SANOFI AVENTIS
  Company Number: ZA-SA-2019SA256044

PATIENT
  Age: 58 Year
  Sex: Female

DRUGS (2)
  1. TERIFLUNOMIDE [Suspect]
     Active Substance: TERIFLUNOMIDE
     Indication: Multiple sclerosis
     Dosage: 14 MG, QD
     Route: 048
     Dates: start: 20190722, end: 20220820
  2. TERIFLUNOMIDE [Suspect]
     Active Substance: TERIFLUNOMIDE
     Indication: Relapsing-remitting multiple sclerosis
     Dosage: 14 MG, QD
     Route: 048
     Dates: start: 20240408

REACTIONS (8)
  - Expanded disability status scale score increased [Recovering/Resolving]
  - Facial paresis [Unknown]
  - Hemiparesis [Unknown]
  - Multiple sclerosis relapse [Unknown]
  - Magnetic resonance imaging abnormal [Unknown]
  - Gingival pain [Unknown]
  - Toothache [Unknown]
  - Headache [Unknown]

NARRATIVE: CASE EVENT DATE: 20210801
